FAERS Safety Report 7118302-7 (Version None)
Quarter: 2010Q4

REPORT INFORMATION
  Report Type: 
  Country: None (occurrence: None)
  Receive Date: 20101123
  Receipt Date: 20101112
  Transmission Date: 20110411
  Serious: Yes (Other)
  Sender: FDA-Public Use
  Company Number: US-JNJFOC-20101105032

PATIENT
  Sex: Female

DRUGS (4)
  1. LEVAQUIN [Suspect]
     Indication: ILL-DEFINED DISORDER
     Route: 065
  2. TOVIAZ [Suspect]
     Indication: ILL-DEFINED DISORDER
     Route: 065
  3. XANAX [Suspect]
     Indication: ILL-DEFINED DISORDER
     Route: 065
  4. LEXAPRO [Suspect]
     Indication: ILL-DEFINED DISORDER
     Route: 065

REACTIONS (1)
  - CATARACT [None]
